FAERS Safety Report 22640107 (Version 1)
Quarter: 2023Q2

REPORT INFORMATION
  Report Type: Report from Study
  Country: CA (occurrence: CA)
  Receive Date: 20230626
  Receipt Date: 20230626
  Transmission Date: 20230722
  Serious: Yes (Other)
  Sender: FDA-Public Use
  Company Number: CA-002147023-NVSC2023CA131347

PATIENT
  Age: 20 Year
  Sex: Female

DRUGS (6)
  1. GLYCOPYRROLATE\INDACATEROL\MOMETASONE FUROATE [Suspect]
     Active Substance: GLYCOPYRROLATE\INDACATEROL\MOMETASONE FUROATE
     Indication: Asthma
     Dosage: 150 UG, QD (1 DOSE)
     Route: 048
     Dates: start: 202211
  2. MONTELUKAST [Suspect]
     Active Substance: MONTELUKAST SODIUM
     Indication: Product used for unknown indication
     Dosage: UNK
     Route: 065
  3. BUPROPION [Suspect]
     Active Substance: BUPROPION
     Indication: Product used for unknown indication
     Dosage: 150 MG, BID
     Route: 065
  4. SYMBICORT [Concomitant]
     Active Substance: BUDESONIDE\FORMOTEROL FUMARATE DIHYDRATE
     Indication: Asthma
     Dosage: 4 DOSAGE FORM, BID
  5. VENTOLIN [Concomitant]
     Active Substance: ALBUTEROL SULFATE
     Indication: Product used for unknown indication
     Dosage: UNK, QD (DOSE: 2)
     Dates: start: 2019
  6. DYMISTA [Concomitant]
     Active Substance: AZELASTINE HYDROCHLORIDE\FLUTICASONE PROPIONATE
     Indication: Product used for unknown indication
     Dosage: UNK, QD (DOSE: 1)
     Route: 045
     Dates: start: 202009

REACTIONS (14)
  - Cardiac infection [Unknown]
  - Electrocardiogram ST-T segment abnormal [Unknown]
  - Middle insomnia [Unknown]
  - Asthma [Unknown]
  - Dyspnoea [Unknown]
  - Dyspnoea exertional [Unknown]
  - Chest discomfort [Unknown]
  - Hypopnoea [Unknown]
  - Headache [Unknown]
  - Sinusitis [Unknown]
  - Sinus arrhythmia [Unknown]
  - Obstructive airways disorder [Unknown]
  - Drug ineffective [Unknown]
  - Drug intolerance [Unknown]
